FAERS Safety Report 8542378-3 (Version None)
Quarter: 2012Q3

REPORT INFORMATION
  Report Type: 
  Country: None (occurrence: None)
  Receive Date: 20120726
  Receipt Date: 20110815
  Transmission Date: 20120928
  Serious: Yes (Hospitalization)
  Sender: FDA-Public Use
  Company Number: US-ASTRAZENECA-2011SE48907

PATIENT
  Age: 21361 Day
  Sex: Male
  Weight: 86.2 kg

DRUGS (5)
  1. TAXIL [Concomitant]
     Indication: PAIN
     Dosage: FOUR TIMES A DAY
     Route: 048
  2. TEGRETOL [Concomitant]
     Indication: NERVOUSNESS
     Route: 048
     Dates: start: 20090101
  3. SEROQUEL [Suspect]
     Indication: BIPOLAR DISORDER
     Route: 048
     Dates: start: 20000801
  4. FENTANYL [Concomitant]
     Indication: PAIN
     Route: 048
  5. XANAX [Concomitant]
     Indication: PSYCHIATRIC SYMPTOM
     Route: 048
     Dates: start: 20090101

REACTIONS (3)
  - NAUSEA [None]
  - ABDOMINAL DISCOMFORT [None]
  - BLOOD SODIUM DECREASED [None]
